FAERS Safety Report 17872360 (Version 6)
Quarter: 2024Q1

REPORT INFORMATION
  Report Type: Report from Study
  Country: CO (occurrence: CO)
  Receive Date: 20200608
  Receipt Date: 20240326
  Transmission Date: 20240410
  Serious: Yes (Life-Threatening, Hospitalization)
  Sender: FDA-Public Use
  Company Number: None

PATIENT
  Age: 5 Year
  Sex: Male
  Weight: 23 kg

DRUGS (8)
  1. ELTROMBOPAG OLAMINE [Suspect]
     Active Substance: ELTROMBOPAG OLAMINE
     Indication: Immune thrombocytopenia
     Dosage: 50 MG, QD
     Route: 048
     Dates: start: 201912
  2. ELTROMBOPAG OLAMINE [Suspect]
     Active Substance: ELTROMBOPAG OLAMINE
     Dosage: 50 MG, QD
     Route: 048
     Dates: start: 202003, end: 20200510
  3. ELTROMBOPAG OLAMINE [Suspect]
     Active Substance: ELTROMBOPAG OLAMINE
     Dosage: 75 MG, QD
     Route: 048
     Dates: start: 20191223
  4. ELTROMBOPAG OLAMINE [Suspect]
     Active Substance: ELTROMBOPAG OLAMINE
     Dosage: 75 MG, QD (TABLET OF 25 MG)
     Route: 048
     Dates: start: 20200510
  5. ELTROMBOPAG OLAMINE [Suspect]
     Active Substance: ELTROMBOPAG OLAMINE
     Dosage: 50 MG, QD
     Route: 048
  6. ELTROMBOPAG OLAMINE [Suspect]
     Active Substance: ELTROMBOPAG OLAMINE
     Dosage: 75 MG TWICE A WEEK AND 50 MG IN THE REST, THIS WEEK
     Route: 065
  7. CLOPIDOGREL BISULFATE [Suspect]
     Active Substance: CLOPIDOGREL BISULFATE
     Indication: Product used for unknown indication
     Dosage: 6 MG
     Route: 065
  8. PREDNISOLONE [Concomitant]
     Active Substance: PREDNISOLONE
     Indication: Product used for unknown indication
     Dosage: UNK UNK, Q8H
     Route: 065
     Dates: start: 202004

REACTIONS (12)
  - Platelet count decreased [Recovered/Resolved]
  - Glucocorticoids decreased [Unknown]
  - Petechiae [Recovered/Resolved]
  - Platelet count increased [Recovered/Resolved]
  - Haemoglobin decreased [Unknown]
  - Haemoglobin abnormal [Unknown]
  - Viral infection [Unknown]
  - White blood cell count decreased [Unknown]
  - Headache [Recovered/Resolved]
  - Pain in extremity [Recovered/Resolved]
  - Platelet count abnormal [Unknown]
  - Product dispensing issue [Unknown]

NARRATIVE: CASE EVENT DATE: 20200601
